FAERS Safety Report 10749687 (Version 1)
Quarter: 2015Q1

REPORT INFORMATION
  Report Type: Spontaneous
  Country: IT (occurrence: IT)
  Receive Date: 20150129
  Receipt Date: 20150129
  Transmission Date: 20150721
  Serious: Yes (Other)
  Sender: FDA-Public Use
  Company Number: IT-PFIZER INC-2015014724

PATIENT
  Age: 82 Year
  Sex: Male

DRUGS (6)
  1. METFORAL [Concomitant]
     Active Substance: METFORMIN HYDROCHLORIDE
     Dosage: UNK
     Route: 048
  2. CARDIOASPIRIN [Concomitant]
     Active Substance: ASPIRIN
     Dosage: UNK
  3. ZOLOFT [Suspect]
     Active Substance: SERTRALINE HYDROCHLORIDE
     Indication: DEPRESSION
     Dosage: 1 DF, DAILY
     Route: 048
     Dates: start: 20141201, end: 20141208
  4. BIVIS [Concomitant]
     Active Substance: AMLODIPINE BESYLATE\OLMESARTAN MEDOXOMIL
     Dosage: UNK
     Route: 048
  5. VALPINAX [Concomitant]
     Dosage: UNK
     Route: 048
  6. NORMIX [Concomitant]
     Active Substance: RIFAXIMIN
     Dosage: UNK
     Route: 048

REACTIONS (5)
  - Anxiety [Recovering/Resolving]
  - Mood altered [Recovering/Resolving]
  - Tremor [Recovering/Resolving]
  - Asthenia [Recovering/Resolving]
  - Self-injurious ideation [Recovering/Resolving]

NARRATIVE: CASE EVENT DATE: 20141208
